FAERS Safety Report 6388873-7 (Version None)
Quarter: 2009Q4

REPORT INFORMATION
  Report Type: 
  Country: None (occurrence: None)
  Receive Date: 20091001
  Receipt Date: 20090922
  Transmission Date: 20100525
  Serious: Yes (Hospitalization)
  Sender: FDA-Public Use
  Company Number: ADR29762009

PATIENT
  Age: 67 Year
  Sex: Male

DRUGS (7)
  1. RAMIPRIL [Suspect]
     Indication: HYPERTENSION
     Dosage: 10 MG, 1/1 DAYS, ORAL
     Route: 048
  2. ASPIRIN [Concomitant]
  3. ATENOLOL [Concomitant]
  4. FRUSEMIDE [Concomitant]
  5. ISOSORBIDE MONONITRATE [Concomitant]
  6. NAPROXEN [Concomitant]
  7. SIMVASTATIN [Concomitant]

REACTIONS (4)
  - CHEST PAIN [None]
  - DIZZINESS [None]
  - HYPOTENSION [None]
  - RENAL IMPAIRMENT [None]
